FAERS Safety Report 8543059-2 (Version None)
Quarter: 2012Q3

REPORT INFORMATION
  Report Type: 
  Country: None (occurrence: None)
  Receive Date: 20120727
  Receipt Date: 20120718
  Transmission Date: 20120928
  Serious: Yes (Other)
  Sender: FDA-Public Use
  Company Number: US-PERRIGO-12US006217

PATIENT
  Age: 21 Year
  Sex: Male

DRUGS (1)
  1. DEXTROMETHORPHAN HYDROBROMIDE [Suspect]
     Indication: INTENTIONAL OVERDOSE
     Dosage: 720 MG, SINGLE
     Route: 048
     Dates: start: 20120717, end: 20120717

REACTIONS (1)
  - INTENTIONAL OVERDOSE [None]
